FAERS Safety Report 9149741 (Version 1)
Quarter: 2013Q1

REPORT INFORMATION
  Report Type: Spontaneous
  Country: BR (occurrence: BR)
  Receive Date: 20130308
  Receipt Date: 20130308
  Transmission Date: 20140127
  Serious: Yes (Other)
  Sender: FDA-Public Use
  Company Number: BR-PFIZER INC-2013076190

PATIENT
  Sex: 0

DRUGS (5)
  1. GEODON [Suspect]
     Indication: SCHIZOAFFECTIVE DISORDER
     Dosage: UNK
     Route: 048
  2. LAMICTAL [Concomitant]
     Dosage: UNK
  3. CYMBALTA [Concomitant]
     Dosage: UNK
  4. CARBOLITIUM [Concomitant]
     Dosage: UNK
  5. SOCIAN [Concomitant]

REACTIONS (2)
  - Suicidal ideation [Unknown]
  - Depressed mood [Not Recovered/Not Resolved]
